FAERS Safety Report 10205430 (Version 3)
Quarter: 2014Q3

REPORT INFORMATION
  Report Type: Spontaneous
  Country: BR (occurrence: BR)
  Receive Date: 20140529
  Receipt Date: 20140902
  Transmission Date: 20150326
  Serious: Yes (Death, Other)
  Sender: FDA-Public Use
  Company Number: BR-PFIZER INC-2013373881

PATIENT
  Age: 57 Year
  Sex: Male

DRUGS (1)
  1. SUTENT [Suspect]
     Active Substance: SUNITINIB MALATE
     Indication: RENAL CELL CARCINOMA
     Dosage: 50 MG, CYCLIC (1X/DAY, CYCLE 4/2)
     Route: 048
     Dates: start: 20131204

REACTIONS (18)
  - Diarrhoea [Not Recovered/Not Resolved]
  - Hypervolaemia [Unknown]
  - Dry mouth [Not Recovered/Not Resolved]
  - Gastrointestinal haemorrhage [Not Recovered/Not Resolved]
  - Rhinitis [Unknown]
  - Pneumonia [Unknown]
  - Aphthous stomatitis [Unknown]
  - Haemorrhoids [Not Recovered/Not Resolved]
  - Muscular weakness [Unknown]
  - Pleural effusion [Unknown]
  - Fatigue [Unknown]
  - Vomiting [Not Recovered/Not Resolved]
  - Pyrexia [Unknown]
  - Dyspnoea [Unknown]
  - Vein disorder [Unknown]
  - Death [Fatal]
  - Cough [Unknown]
  - Decreased appetite [Unknown]

NARRATIVE: CASE EVENT DATE: 201312
